FAERS Safety Report 13951528 (Version 1)
Quarter: 2017Q3

REPORT INFORMATION
  Report Type: Spontaneous
  Country: US (occurrence: US)
  Receive Date: 20170908
  Receipt Date: 20170908
  Transmission Date: 20171128
  Serious: No
  Sender: FDA-Public Use
  Company Number: US-JAZZ-JPI-P-030318

PATIENT
  Age: 33 Year
  Sex: Female

DRUGS (5)
  1. PROZAC (FLUOXETINE HCL) [Concomitant]
  2. XYREM [Suspect]
     Active Substance: SODIUM OXYBATE
     Dosage: 4.5 G, BID
     Route: 048
     Dates: start: 20130217
  3. XYREM [Suspect]
     Active Substance: SODIUM OXYBATE
     Indication: NARCOLEPSY
     Dosage: 2.25 G, BID
     Route: 048
     Dates: start: 20130201, end: 201302
  4. XYREM [Suspect]
     Active Substance: SODIUM OXYBATE
     Dosage: UNKNOWN, SINGLE
     Route: 048
     Dates: start: 201302, end: 20130216
  5. WELLBUTRIN (BUPROPION HCL) [Concomitant]

REACTIONS (33)
  - Emotional disorder [Unknown]
  - Acne [Not Recovered/Not Resolved]
  - Feeling abnormal [Unknown]
  - Condition aggravated [Unknown]
  - Malaise [Unknown]
  - Hunger [Unknown]
  - Influenza [Unknown]
  - Atypical pneumonia [Unknown]
  - Neck pain [Recovered/Resolved]
  - Crying [Unknown]
  - Musculoskeletal pain [Recovered/Resolved]
  - Fatigue [Unknown]
  - Enuresis [Unknown]
  - Cough [Not Recovered/Not Resolved]
  - Productive cough [Unknown]
  - Anal incontinence [Unknown]
  - Gait disturbance [Not Recovered/Not Resolved]
  - Musculoskeletal stiffness [Not Recovered/Not Resolved]
  - Morbid thoughts [Unknown]
  - Disorientation [Recovered/Resolved]
  - Wrong technique in product usage process [Unknown]
  - Insomnia [Not Recovered/Not Resolved]
  - Apathy [Unknown]
  - Sleep talking [Not Recovered/Not Resolved]
  - Somnambulism [Not Recovered/Not Resolved]
  - Nausea [Unknown]
  - Hyperhidrosis [Unknown]
  - Myalgia [Not Recovered/Not Resolved]
  - Asthenia [Not Recovered/Not Resolved]
  - Sleep terror [Recovered/Resolved]
  - Bronchitis [Unknown]
  - Tearfulness [Unknown]
  - Screaming [Recovered/Resolved]

NARRATIVE: CASE EVENT DATE: 2013
